FAERS Safety Report 6372924-X (Version None)
Quarter: 2009Q3

REPORT INFORMATION
  Report Type: 
  Country: None (occurrence: None)
  Receive Date: 20090924
  Receipt Date: 20081119
  Transmission Date: 20100115
  Serious: No
  Sender: FDA-Public Use
  Company Number: US-ASTRAZENECA-2008UW26021

PATIENT
  Age: 65 Year
  Sex: Female

DRUGS (3)
  1. SEROQUEL [Suspect]
     Route: 048
  2. XANAX [Suspect]
  3. ZOLPIDEM [Concomitant]

REACTIONS (2)
  - EUPHORIC MOOD [None]
  - INSOMNIA [None]
